FAERS Safety Report 25118266 (Version 1)
Quarter: 2025Q1

REPORT INFORMATION
  Report Type: Spontaneous
  Country: QA (occurrence: QA)
  Receive Date: 20250325
  Receipt Date: 20250325
  Transmission Date: 20250408
  Serious: Yes (Hospitalization, Other)
  Sender: ACCORD
  Company Number: QA-Accord-475032

PATIENT
  Age: 25 Year
  Sex: Male

DRUGS (3)
  1. ATROPINE SULFATE [Suspect]
     Active Substance: ATROPINE SULFATE
     Indication: Atrioventricular block second degree
  2. EPINEPHRINE [Concomitant]
     Active Substance: EPINEPHRINE
     Indication: Resuscitation
  3. KETAMINE [Concomitant]
     Active Substance: KETAMINE
     Indication: Resuscitation

REACTIONS (2)
  - Atrial fibrillation [Recovered/Resolved]
  - Electrocardiogram ST segment depression [Recovered/Resolved]
